FAERS Safety Report 19172973 (Version 1)
Quarter: 2021Q2

REPORT INFORMATION
  Report Type: Spontaneous
  Country: US (occurrence: US)
  Receive Date: 20210422
  Receipt Date: 20210422
  Transmission Date: 20210717
  Serious: Yes (Other)
  Sender: FDA-Public Use
  Company Number: None

PATIENT
  Sex: Female

DRUGS (1)
  1. GNP FIBER NAT SMTH ORG SF POWDER [Suspect]
     Active Substance: PSYLLIUM HUSK
     Indication: CONSTIPATION
     Route: 048
     Dates: start: 20210315, end: 20210421

REACTIONS (4)
  - Dyspnoea [None]
  - Eye irritation [None]
  - Hypersensitivity [None]
  - Throat irritation [None]

NARRATIVE: CASE EVENT DATE: 20210315
